FAERS Safety Report 7170585-3 (Version None)
Quarter: 2010Q4

REPORT INFORMATION
  Report Type: 
  Country: None (occurrence: None)
  Receive Date: 20101217
  Receipt Date: 20101207
  Transmission Date: 20110411
  Serious: Yes (Hospitalization, Congenital Anomaly)
  Sender: FDA-Public Use
  Company Number: A0681210A

PATIENT
  Sex: Female

DRUGS (3)
  1. PAXIL [Suspect]
  2. PRENATAL VITAMINS [Concomitant]
  3. SERENTIL [Concomitant]

REACTIONS (5)
  - AORTIC VALVE INCOMPETENCE [None]
  - ATRIAL SEPTAL DEFECT [None]
  - COGNITIVE DISORDER [None]
  - DRUG EXPOSURE DURING PREGNANCY [None]
  - PULMONARY VALVE STENOSIS [None]
